FAERS Safety Report 6053388-2 (Version None)
Quarter: 2009Q1

REPORT INFORMATION
  Report Type: 
  Country: None (occurrence: None)
  Receive Date: 20090127
  Receipt Date: 20080212
  Transmission Date: 20090719
  Serious: No
  Sender: FDA-Public Use
  Company Number: US-TEVA-167655USA

PATIENT
  Sex: Female
  Weight: 59.02 kg

DRUGS (3)
  1. COPAXONE [Suspect]
     Indication: RELAPSING-REMITTING MULTIPLE SCLEROSIS
     Route: 058
     Dates: start: 20060701, end: 20080208
  2. MODAFINIL [Concomitant]
  3. ACYCLOVIR SODIUM [Concomitant]

REACTIONS (3)
  - DYSPNOEA [None]
  - INFLUENZA LIKE ILLNESS [None]
  - URTICARIA [None]
